FAERS Safety Report 5882520-6 (Version None)
Quarter: 2008Q3

REPORT INFORMATION
  Report Type: 
  Country: None (occurrence: None)
  Receive Date: 20080913
  Receipt Date: 20080804
  Transmission Date: 20090109
  Serious: No
  Sender: FDA-Public Use
  Company Number: US-ABBOTT-08P-163-0469009-00

PATIENT
  Sex: Male
  Weight: 99.88 kg

DRUGS (7)
  1. HUMIRA [Suspect]
     Indication: PSORIATIC ARTHROPATHY
     Route: 058
     Dates: start: 20080401
  2. HUMIRA [Suspect]
     Route: 058
  3. HUMIRA [Suspect]
     Route: 058
  4. MULTI-VITAMIN [Concomitant]
     Indication: VITAMIN SUPPLEMENTATION
     Route: 048
  5. NAPROSYN [Concomitant]
     Indication: PSORIATIC ARTHROPATHY
     Dosage: 500 MG, AS NEEDED, ONCE EVERY COUPLE WEEKS
     Route: 048
  6. CETIRIZINE HYDROCHLORIDE [Concomitant]
     Indication: HYPERSENSITIVITY
     Dosage: 10 MG DAILY AS NEEDED
     Route: 048
  7. ALBUTEROL SPIROS [Concomitant]
     Indication: HYPERSENSITIVITY
     Dosage: 1 PUFF, 1-2 TIMES DAILY
     Route: 055
     Dates: start: 20060101

REACTIONS (1)
  - DRY SKIN [None]
